FAERS Safety Report 13889559 (Version 2)
Quarter: 2018Q1

REPORT INFORMATION
  Report Type: Spontaneous
  Country: PL (occurrence: PL)
  Receive Date: 20170822
  Receipt Date: 20180320
  Transmission Date: 20180508
  Serious: Yes (Other)
  Sender: FDA-Public Use
  Company Number: PL-CIPLA LTD.-2017PL13494

PATIENT

DRUGS (5)
  1. VANCOMYCIN [Concomitant]
     Active Substance: VANCOMYCIN
     Indication: SPINAL CORD INFECTION
     Dosage: 1 G, BID
     Route: 042
  2. CLINDAMYCIN. [Suspect]
     Active Substance: CLINDAMYCIN
     Dosage: 900 MG, TID
     Route: 042
  3. VANCOMYCIN [Concomitant]
     Active Substance: VANCOMYCIN
     Dosage: UNK, ADJUSTED BASED ON THERAPEUTIC LEVEL
     Route: 065
  4. CLINDAMYCIN. [Suspect]
     Active Substance: CLINDAMYCIN
     Indication: SPINAL CORD INFECTION
     Dosage: 900 MG, TID
     Route: 042
  5. CLINDAMYCIN. [Suspect]
     Active Substance: CLINDAMYCIN
     Dosage: 300 MG, QID
     Route: 048

REACTIONS (2)
  - Treatment failure [Unknown]
  - Drug resistance [Unknown]
